FAERS Safety Report 8766165 (Version 2)
Quarter: 2013Q1

REPORT INFORMATION
  Report Type: Spontaneous
  Country: FR (occurrence: FR)
  Receive Date: 20120904
  Receipt Date: 20130118
  Transmission Date: 20140127
  Serious: Yes (Other)
  Sender: FDA-Public Use
  Company Number: FR-ASTRAZENECA-2012SE61302

PATIENT
  Age: 24046 Day
  Sex: Female

DRUGS (2)
  1. ARIMIDEX [Suspect]
     Indication: BREAST CANCER
     Route: 048
     Dates: end: 201103
  2. TAMOXIFEN [Concomitant]

REACTIONS (2)
  - Breast calcifications [Not Recovered/Not Resolved]
  - Off label use [Recovered/Resolved]
